FAERS Safety Report 4820869-6 (Version None)
Quarter: 2005Q4

REPORT INFORMATION
  Report Type: 
  Country: None (occurrence: None)
  Receive Date: 20051103
  Receipt Date: 20051013
  Transmission Date: 20060501
  Serious: Yes (Hospitalization, Other)
  Sender: FDA-Public Use
  Company Number: USA0510110875

PATIENT
  Sex: Female

DRUGS (10)
  1. FORTEO [Suspect]
     Indication: OSTEOPOROSIS
  2. ASPIRIN [Concomitant]
  3. CALTRATE 600 PLUS VITAMIN D [Concomitant]
  4. FOLIC ACID [Concomitant]
  5. CENTRUM SILVER [Concomitant]
  6. ATENOLOL [Concomitant]
  7. CRESTOR [Concomitant]
  8. SYNTHROID [Concomitant]
  9. APO-LISINOPRIL (LISINOPRIL) [Concomitant]
  10. PLENDIL [Concomitant]

REACTIONS (5)
  - ANEURYSM [None]
  - CORONARY ARTERY OCCLUSION [None]
  - ENDOMETRIAL CANCER [None]
  - PHARMACEUTICAL PRODUCT COMPLAINT [None]
  - THROMBOSIS [None]
